FAERS Safety Report 6692520-4 (Version None)
Quarter: 2010Q2

REPORT INFORMATION
  Report Type: 
  Country: None (occurrence: None)
  Receive Date: 20100422
  Receipt Date: 20100416
  Transmission Date: 20101027
  Serious: Yes (Hospitalization)
  Sender: FDA-Public Use
  Company Number: B0648368A

PATIENT
  Age: 85 Year
  Sex: Female

DRUGS (1)
  1. VALTREX [Suspect]
     Indication: HERPES ZOSTER
     Dosage: 3000MG PER DAY
     Route: 048
     Dates: start: 20100406, end: 20100410

REACTIONS (4)
  - DECREASED APPETITE [None]
  - DYSARTHRIA [None]
  - DYSURIA [None]
  - RENAL IMPAIRMENT [None]
